FAERS Safety Report 7534535-X (Version None)
Quarter: 2011Q2

REPORT INFORMATION
  Report Type: 
  Country: None (occurrence: None)
  Receive Date: 20110609
  Receipt Date: 20091014
  Transmission Date: 20111010
  Serious: Yes (Other)
  Sender: FDA-Public Use
  Company Number: PHHY2009HU44710

PATIENT
  Sex: Female
  Weight: 101 kg

DRUGS (4)
  1. SULFASALAZINE [Concomitant]
  2. LETROZOLE [Suspect]
     Indication: BREAST CANCER
     Dosage: 2.5 MG, UNK
     Route: 048
     Dates: start: 20070905, end: 20091002
  3. TRITACE [Concomitant]
     Indication: HYPERTENSION
     Dosage: 25 MG, QD
  4. AMILORID [Concomitant]
     Indication: HYPERTENSION
     Dosage: 25 MG, QD

REACTIONS (2)
  - HAEMATOCHEZIA [None]
  - COLITIS ULCERATIVE [None]
